FAERS Safety Report 4686839-6 (Version None)
Quarter: 2005Q2

REPORT INFORMATION
  Report Type: 
  Country: None (occurrence: None)
  Receive Date: 20050609
  Receipt Date: 20050524
  Transmission Date: 20051028
  Serious: Yes (Life-Threatening, Other)
  Sender: FDA-Public Use
  Company Number: JP-MERCK-0505USA03428

PATIENT
  Age: 74 Year
  Sex: Female

DRUGS (9)
  1. PEPCID RPD [Suspect]
     Indication: GASTROINTESTINAL DISORDER
     Route: 048
     Dates: start: 20050513, end: 20050524
  2. DOGMATYL [Concomitant]
     Route: 048
     Dates: start: 20050516, end: 20050524
  3. PAXIL [Suspect]
     Indication: DEPRESSION
     Route: 048
     Dates: start: 20050523, end: 20050523
  4. MAGNESIUM OXIDE [Concomitant]
     Route: 048
     Dates: start: 20050513
  5. LASIX [Concomitant]
     Route: 048
     Dates: start: 20050513, end: 20050520
  6. LASIX [Concomitant]
     Route: 048
     Dates: start: 20050521
  7. ZYLORIC [Concomitant]
     Route: 048
     Dates: end: 20050525
  8. VERAPAMIL [Concomitant]
     Route: 048
     Dates: start: 20050517, end: 20050522
  9. VERAPAMIL [Concomitant]
     Route: 048
     Dates: start: 20050523, end: 20050524

REACTIONS (4)
  - DEPRESSION [None]
  - ELECTROCARDIOGRAM QT PROLONGED [None]
  - TORSADE DE POINTES [None]
  - VENTRICULAR FIBRILLATION [None]
